FAERS Safety Report 16332081 (Version 1)
Quarter: 2019Q2

REPORT INFORMATION
  Report Type: Spontaneous
  Country: US (occurrence: US)
  Receive Date: 20190519
  Receipt Date: 20190519
  Transmission Date: 20190711
  Serious: Yes (Life-Threatening, Hospitalization)
  Sender: FDA-Public Use
  Company Number: None

PATIENT
  Age: 65 Year
  Sex: Male

DRUGS (2)
  1. TAFINLAR [Concomitant]
     Active Substance: DABRAFENIB MESYLATE
     Dates: start: 20190315, end: 20190516
  2. MEKINIST [Suspect]
     Active Substance: TRAMETINIB DIMETHYL SULFOXIDE
     Indication: MALIGNANT MELANOMA
     Route: 048
     Dates: start: 20190315

REACTIONS (3)
  - Therapy cessation [None]
  - Atrial fibrillation [None]
  - Adverse drug reaction [None]

NARRATIVE: CASE EVENT DATE: 20190516
